FAERS Safety Report 25169153 (Version 3)
Quarter: 2025Q2

REPORT INFORMATION
  Report Type: Spontaneous
  Country: CO (occurrence: CO)
  Receive Date: 20250407
  Receipt Date: 20250519
  Transmission Date: 20250717
  Serious: No
  Sender: AMGEN
  Company Number: CO-AMGEN-COLSP2025063797

PATIENT
  Age: 75 Year
  Sex: Female
  Weight: 47 kg

DRUGS (1)
  1. PEGFILGRASTIM [Suspect]
     Active Substance: PEGFILGRASTIM
     Indication: Prophylaxis
     Route: 065

REACTIONS (1)
  - Device adhesion issue [Unknown]

NARRATIVE: CASE EVENT DATE: 20250311
